FAERS Safety Report 7012139-5 (Version None)
Quarter: 2010Q3

REPORT INFORMATION
  Report Type: 
  Country: None (occurrence: None)
  Receive Date: 20100924
  Receipt Date: 20100913
  Transmission Date: 20110219
  Serious: Yes (Other)
  Sender: FDA-Public Use
  Company Number: US-JNJFOC-20100904870

PATIENT
  Sex: Male
  Weight: 115.21 kg

DRUGS (3)
  1. REMICADE [Suspect]
     Indication: RHEUMATOID ARTHRITIS
     Route: 042
  2. OPANA [Concomitant]
     Indication: PAIN
  3. VICODIN [Concomitant]
     Indication: PAIN

REACTIONS (1)
  - LUMBAR SPINAL STENOSIS [None]
